FAERS Safety Report 5047073-3 (Version None)
Quarter: 2006Q3

REPORT INFORMATION
  Report Type: 
  Country: None (occurrence: None)
  Receive Date: 20060710
  Receipt Date: 20060628
  Transmission Date: 20061208
  Serious: Yes (Life-Threatening, Hospitalization, Disabling, Other)
  Sender: FDA-Public Use
  Company Number: GB-BRISTOL-MYERS SQUIBB COMPANY-13426358

PATIENT
  Age: 65 Year
  Sex: Male
  Weight: 140 kg

DRUGS (3)
  1. ABILIFY [Suspect]
     Indication: BIPOLAR DISORDER
     Route: 048
     Dates: start: 20060410, end: 20060515
  2. LITHIUM CARBONATE [Concomitant]
     Indication: BIPOLAR DISORDER
     Route: 048
     Dates: start: 20050101, end: 20060515
  3. OLANZAPINE [Concomitant]
     Indication: BIPOLAR DISORDER
     Route: 048
     Dates: start: 20050216, end: 20060410

REACTIONS (2)
  - SUICIDE ATTEMPT [None]
  - THERMAL BURN [None]
